FAERS Safety Report 15447441 (Version 2)
Quarter: 2018Q4

REPORT INFORMATION
  Report Type: Report from Study
  Country: US (occurrence: US)
  Receive Date: 20180928
  Receipt Date: 20181011
  Transmission Date: 20190204
  Serious: Yes (Disabling, Other)
  Sender: FDA-Public Use
  Company Number: US-AMGEN-USASL2018134738

PATIENT
  Age: 63 Year
  Sex: Female

DRUGS (1)
  1. ENBREL [Suspect]
     Active Substance: ETANERCEPT
     Indication: RHEUMATOID ARTHRITIS
     Dosage: UNK
     Route: 065

REACTIONS (1)
  - Disability [Unknown]

NARRATIVE: CASE EVENT DATE: 2018
